FAERS Safety Report 9592443 (Version 1)
Quarter: 2013Q4

REPORT INFORMATION
  Report Type: Spontaneous
  Country: US (occurrence: None)
  Receive Date: 20131004
  Receipt Date: 20131004
  Transmission Date: 20140711
  Serious: Yes (Death)
  Sender: FDA-Public Use
  Company Number: None

PATIENT
  Age: 77 Year
  Sex: Male
  Weight: 79.38 kg

DRUGS (2)
  1. METHYLPREDNISOLONE [Suspect]
     Indication: CARDIAC OPERATION
     Dates: start: 20120608, end: 20120913
  2. METHYLPREDNISOLONE [Suspect]
     Indication: CHEMOTHERAPY
     Dates: start: 20120608, end: 20120913

REACTIONS (1)
  - Infection [None]
